FAERS Safety Report 4424232-1 (Version None)
Quarter: 2004Q3

REPORT INFORMATION
  Report Type: 
  Country: None (occurrence: None)
  Receive Date: 20040809
  Receipt Date: 20040722
  Transmission Date: 20050211
  Serious: Yes (Hospitalization)
  Sender: FDA-Public Use
  Company Number: JP-2004-028057

PATIENT
  Age: 30 Year
  Sex: Female

DRUGS (1)
  1. BETAFERON [Suspect]
     Indication: MULTIPLE SCLEROSIS
     Dosage: SUBCUTANEOUS
     Route: 058
     Dates: start: 20031101

REACTIONS (3)
  - ERYTHEMA [None]
  - INJECTION SITE NECROSIS [None]
  - WHITE BLOOD CELL COUNT DECREASED [None]
